FAERS Safety Report 8530535-1 (Version None)
Quarter: 2012Q2

REPORT INFORMATION
  Report Type: 
  Country: None (occurrence: None)
  Receive Date: 20120411
  Receipt Date: 20120216
  Transmission Date: 20120825
  Serious: No
  Sender: FDA-Public Use
  Company Number: PHEH2011US07038

PATIENT
  Age: 5 Year
  Sex: Male
  Weight: 60 kg

DRUGS (1)
  1. ILARIS [Suspect]
     Indication: INFLAMMATION
     Dosage: 75 MG, SUBCUTANEOUS
     Route: 058
     Dates: start: 20110201

REACTIONS (4)
  - ARTHRALGIA [None]
  - MUSCULOSKELETAL DISCOMFORT [None]
  - ABASIA [None]
  - DISCOMFORT [None]
